FAERS Safety Report 6855021-6 (Version None)
Quarter: 2010Q3

REPORT INFORMATION
  Report Type: 
  Country: None (occurrence: None)
  Receive Date: 20100717
  Receipt Date: 20080512
  Transmission Date: 20110219
  Serious: No
  Sender: FDA-Public Use
  Company Number: US-PFIZER INC-2008000286

PATIENT
  Sex: Female
  Weight: 68.2 kg

DRUGS (5)
  1. CHANTIX [Suspect]
     Indication: SMOKING CESSATION THERAPY
     Dates: start: 20071116
  2. LEVOTHYROXINE SODIUM [Concomitant]
  3. ATIVAN [Concomitant]
  4. ALLEGRA [Concomitant]
  5. CALCIUM [Concomitant]

REACTIONS (9)
  - ABNORMAL DREAMS [None]
  - AGITATION [None]
  - ANXIETY [None]
  - CHEST X-RAY ABNORMAL [None]
  - HYPOKINESIA [None]
  - MOOD SWINGS [None]
  - PANIC ATTACK [None]
  - PERSONALITY CHANGE [None]
  - SLEEP DISORDER [None]
